FAERS Safety Report 5073018-6 (Version None)
Quarter: 2006Q3

REPORT INFORMATION
  Report Type: 
  Country: None (occurrence: None)
  Receive Date: 20060802
  Receipt Date: 20060724
  Transmission Date: 20061208
  Serious: Yes (Other)
  Sender: FDA-Public Use
  Company Number: 2006091329

PATIENT
  Age: 49 Year
  Sex: Female

DRUGS (10)
  1. NEURONTIN [Suspect]
     Indication: NEURALGIA
     Dosage: 1600 MG (400 MG, 1 IN 1 D), ORAL
     Route: 048
     Dates: start: 19960101, end: 20060701
  2. AMITRIPTYLINE HCL [Concomitant]
  3. HYDROCHLOROTHIAZIDE [Concomitant]
  4. DIAZEPAM [Concomitant]
  5. BACLOFEN [Concomitant]
  6. OMEPRAZOLE [Concomitant]
  7. DULCOLAX [Concomitant]
  8. FLUOXETINE [Concomitant]
  9. ACETYLSALICYLIC ACID SRT [Concomitant]
  10. CARBAMAZEPINE [Concomitant]

REACTIONS (3)
  - BURNING SENSATION [None]
  - DRUG DEPENDENCE [None]
  - GAIT DISTURBANCE [None]
